FAERS Safety Report 5358423-2 (Version None)
Quarter: 2007Q2

REPORT INFORMATION
  Report Type: 
  Country: None (occurrence: None)
  Receive Date: 20070531
  Receipt Date: 20070202
  Transmission Date: 20071010
  Serious: No
  Sender: FDA-Public Use
  Company Number: 2007MP000055

PATIENT
  Sex: Male
  Weight: 88.4514 kg

DRUGS (1)
  1. DACOGEN [Suspect]
     Indication: MYELODYSPLASTIC SYNDROME
     Dosage: 40 MG;QD;IV
     Route: 042
     Dates: start: 20070201, end: 20070201

REACTIONS (2)
  - INFUSION SITE EXTRAVASATION [None]
  - OFF LABEL USE [None]
